FAERS Safety Report 14220025 (Version 2)
Quarter: 2018Q1

REPORT INFORMATION
  Report Type: Spontaneous
  Country: US (occurrence: US)
  Receive Date: 20171123
  Receipt Date: 20180302
  Transmission Date: 20180508
  Serious: No
  Sender: FDA-Public Use
  Company Number: US-JNJFOC-20171007851

PATIENT
  Sex: Female

DRUGS (5)
  1. TOPAMAX [Suspect]
     Active Substance: TOPIRAMATE
     Indication: SEIZURE
     Route: 048
  2. VIMPAT [Concomitant]
     Active Substance: LACOSAMIDE
     Indication: SEIZURE
     Route: 065
  3. VIMPAT [Concomitant]
     Active Substance: LACOSAMIDE
     Indication: SEIZURE
     Route: 065
  4. TOPAMAX [Suspect]
     Active Substance: TOPIRAMATE
     Indication: SEIZURE
     Route: 048
  5. ONFI [Concomitant]
     Active Substance: CLOBAZAM
     Indication: SEIZURE
     Route: 065

REACTIONS (3)
  - Sedation [Unknown]
  - Drug ineffective [Unknown]
  - Drug intolerance [Unknown]
